FAERS Safety Report 23919685 (Version 1)
Quarter: 2024Q2

REPORT INFORMATION
  Report Type: Spontaneous
  Country: CA (occurrence: None)
  Receive Date: 20240530
  Receipt Date: 20240530
  Transmission Date: 20240716
  Serious: Yes (Other)
  Sender: FDA-Public Use
  Company Number: CA-ROCHE-3570834

PATIENT
  Age: 69 Year
  Sex: Female

DRUGS (4)
  1. RITUXIMAB [Suspect]
     Active Substance: RITUXIMAB
     Indication: Rheumatic disorder
     Route: 065
  2. AZATHIOPRINE [Suspect]
     Active Substance: AZATHIOPRINE
     Indication: Rheumatic disorder
     Route: 065
  3. TOZINAMERAN [Concomitant]
     Active Substance: TOZINAMERAN
     Route: 065
  4. COMIRNATY [Concomitant]
     Dosage: PURPLE CAP VIAL (12+ YEARS) AFTER DILUTION CONTAINS 6 DOSES OF 0.3 ML

REACTIONS (2)
  - SARS-CoV-2 antibody test negative [Unknown]
  - Vaccination failure [Unknown]
